FAERS Safety Report 17774524 (Version 1)
Quarter: 2020Q2

REPORT INFORMATION
  Report Type: Report from Study
  Country: None (occurrence: US)
  Receive Date: 20200513
  Receipt Date: 20200513
  Transmission Date: 20200714
  Serious: No
  Sender: FDA-Public Use
  Company Number: US-BIOVITRUM-2020US0634

PATIENT
  Age: 23 Year
  Sex: Male

DRUGS (1)
  1. KINERET [Suspect]
     Active Substance: ANAKINRA
     Indication: STILL^S DISEASE
     Route: 058
     Dates: start: 20200118

REACTIONS (7)
  - Off label use [Unknown]
  - Injection site reaction [Unknown]
  - Injection site urticaria [Recovering/Resolving]
  - Product dose omission [Unknown]
  - Injection site mass [Recovering/Resolving]
  - Mouth swelling [Recovering/Resolving]
  - Product use issue [Unknown]

NARRATIVE: CASE EVENT DATE: 20200118
